FAERS Safety Report 17785481 (Version 1)
Quarter: 2020Q2

REPORT INFORMATION
  Report Type: Report from Study
  Country: IT (occurrence: IT)
  Receive Date: 20200514
  Receipt Date: 20200514
  Transmission Date: 20200714
  Serious: Yes (Other)
  Sender: FDA-Public Use
  Company Number: IT-UCBSA-2020019653

PATIENT
  Sex: Female

DRUGS (1)
  1. LACOSAMIDE. [Suspect]
     Active Substance: LACOSAMIDE
     Indication: PRODUCT USED FOR UNKNOWN INDICATION
     Dosage: 150 MG/200 MG

REACTIONS (4)
  - Drug ineffective [Unknown]
  - Epilepsy [Unknown]
  - Malaise [Unknown]
  - Loss of consciousness [Unknown]
